FAERS Safety Report 8991523 (Version 1)
Quarter: 2012Q4

REPORT INFORMATION
  Report Type: 
  Country: GB (occurrence: GB)
  Receive Date: 20121231
  Receipt Date: 20121231
  Transmission Date: 20130627
  Serious: Yes (Other)
  Sender: FDA-Public Use
  Company Number: GB-ACCORD-015744

PATIENT
  Age: 61 Year
  Sex: Male
  Weight: 69.5 kg

DRUGS (1)
  1. SIMVASTATIN [Suspect]
     Indication: HYPERCHOLESTEROLEMIA

REACTIONS (2)
  - Nightmare [Recovered/Resolved]
  - Myalgia [Recovered/Resolved]
